FAERS Safety Report 11517836 (Version 1)
Quarter: 2015Q3

REPORT INFORMATION
  Report Type: Other
  Country: FR (occurrence: FR)
  Receive Date: 20150917
  Receipt Date: 20150917
  Transmission Date: 20151125
  Serious: Yes (Hospitalization)
  Sender: FDA-Public Use
  Company Number: FR-AMEDRA PHARMACEUTICALS LLC-2015AMD00193

PATIENT
  Age: 8 Year
  Sex: Male

DRUGS (1)
  1. ZENTEL [Suspect]
     Active Substance: ALBENDAZOLE
     Indication: INFECTION
     Dosage: 10 ML, 1X/DAY
     Route: 048
     Dates: start: 20150702, end: 20150707

REACTIONS (1)
  - Pancreatitis acute [Recovering/Resolving]

NARRATIVE: CASE EVENT DATE: 20150712
